FAERS Safety Report 4631779-1 (Version None)
Quarter: 2005Q2

REPORT INFORMATION
  Report Type: 
  Country: None (occurrence: None)
  Receive Date: 20050407
  Receipt Date: 20050324
  Transmission Date: 20051028
  Serious: No
  Sender: FDA-Public Use
  Company Number: 2005UW04787

PATIENT
  Age: 44 Year
  Sex: Female
  Weight: 72.5755 kg

DRUGS (4)
  1. SEROQUEL [Suspect]
     Indication: BIPOLAR I DISORDER
     Dosage: 500 MG QD PO
     Route: 048
     Dates: start: 20050217, end: 20050317
  2. DEPAKOTE [Concomitant]
  3. MULTI-VITAMIN [Concomitant]
  4. EXCEDRIN (MIGRAINE) [Concomitant]

REACTIONS (1)
  - AGRANULOCYTOSIS [None]
